FAERS Safety Report 6670693-7 (Version None)
Quarter: 2010Q2

REPORT INFORMATION
  Report Type: 
  Country: None (occurrence: None)
  Receive Date: 20100407
  Receipt Date: 20100329
  Transmission Date: 20101027
  Serious: Yes (Life-Threatening, Hospitalization)
  Sender: FDA-Public Use
  Company Number: FR-BRACCO-000384

PATIENT
  Age: 73 Year
  Sex: Female

DRUGS (2)
  1. MULTIHANCE [Suspect]
     Indication: NUCLEAR MAGNETIC RESONANCE IMAGING BRAIN
     Dates: start: 20100325, end: 20100325
  2. MULTIHANCE [Suspect]
     Indication: MEMORY IMPAIRMENT
     Dates: start: 20100325, end: 20100325

REACTIONS (4)
  - PARAESTHESIA [None]
  - PRESYNCOPE [None]
  - RESPIRATORY ARREST [None]
  - SNEEZING [None]
